FAERS Safety Report 16267607 (Version 1)
Quarter: 2019Q2

REPORT INFORMATION
  Report Type: Spontaneous
  Country: IN (occurrence: IN)
  Receive Date: 20190503
  Receipt Date: 20190503
  Transmission Date: 20190711
  Serious: Yes (Other)
  Sender: FDA-Public Use
  Company Number: IN-ACCORD-125240

PATIENT
  Age: 49 Year
  Sex: Male

DRUGS (4)
  1. PREDNISOLONE. [Suspect]
     Active Substance: PREDNISOLONE
     Indication: IMMUNOSUPPRESSION
  2. VORICONAZOLE. [Interacting]
     Active Substance: VORICONAZOLE
     Indication: ANTIFUNGAL TREATMENT
  3. TACROLIMUS. [Suspect]
     Active Substance: TACROLIMUS
     Indication: IMMUNOSUPPRESSION
     Dosage: REDUCED TO ONE-THIRD
  4. MYCOPHENOLIC ACID. [Suspect]
     Active Substance: MYCOPHENOLIC ACID
     Indication: IMMUNOSUPPRESSION

REACTIONS (6)
  - Trichosporon infection [Recovering/Resolving]
  - Drug interaction [Unknown]
  - Leukocytosis [Unknown]
  - Pleural effusion [Unknown]
  - Neutrophilia [Unknown]
  - Respiratory distress [Unknown]
